FAERS Safety Report 12242277 (Version 2)
Quarter: 2016Q3

REPORT INFORMATION
  Report Type: Spontaneous
  Country: US (occurrence: US)
  Receive Date: 20160406
  Receipt Date: 20160711
  Transmission Date: 20161109
  Serious: No
  Sender: FDA-Public Use
  Company Number: US-ASTRAZENECA-2016SE33691

PATIENT
  Sex: Female
  Weight: 70.3 kg

DRUGS (16)
  1. ASPIRIN. [Concomitant]
     Active Substance: ASPIRIN
     Indication: ANTICOAGULANT THERAPY
     Route: 048
  2. METOPROLOL SUCCINATE ER [Suspect]
     Active Substance: METOPROLOL SUCCINATE
     Indication: PULSE ABNORMAL
     Route: 048
     Dates: start: 20160323
  3. GLIPIZIDE ER [Concomitant]
     Active Substance: GLIPIZIDE
     Indication: DIABETES MELLITUS
     Route: 048
     Dates: start: 201506
  4. HCTZ [Concomitant]
     Active Substance: HYDROCHLOROTHIAZIDE
     Indication: ILL-DEFINED DISORDER
     Route: 048
     Dates: start: 201509
  5. METOPROLOL SUCCINATE ER [Suspect]
     Active Substance: METOPROLOL SUCCINATE
     Indication: PULSE ABNORMAL
     Route: 048
  6. FLUCKASONE SPRAY [Concomitant]
     Indication: HYPERSENSITIVITY
     Dosage: AT NIGHT
     Route: 045
     Dates: start: 201509
  7. PULMICORT FLEXHALER [Suspect]
     Active Substance: BUDESONIDE
     Indication: ASTHMA
     Route: 055
     Dates: start: 201601
  8. FISH OIL [Concomitant]
     Active Substance: FISH OIL
     Indication: CARDIAC DISORDER
     Route: 048
  9. AZLASTINE [Concomitant]
     Indication: ASTHMA
     Dosage: DAILY
     Route: 045
     Dates: start: 201509
  10. MONTELUKAST SODIUM. [Concomitant]
     Active Substance: MONTELUKAST SODIUM
     Indication: ASTHMA
     Route: 048
  11. PROAIR INHALER [Concomitant]
     Indication: WHEEZING
     Dosage: AS REQUIRED
     Route: 055
  12. ALBUTEROL. [Concomitant]
     Active Substance: ALBUTEROL
  13. METFORMIN [Concomitant]
     Active Substance: METFORMIN HYDROCHLORIDE
     Indication: DIABETES MELLITUS
     Route: 048
  14. AZLASTINE [Concomitant]
     Indication: MULTIPLE ALLERGIES
     Dosage: DAILY
     Route: 045
     Dates: start: 201509
  15. LOSARTIN [Concomitant]
     Active Substance: LOSARTAN
     Indication: BLOOD PRESSURE ABNORMAL
     Route: 048
  16. SIMVASTIN [Concomitant]
     Active Substance: SIMVASTATIN
     Indication: BLOOD CHOLESTEROL ABNORMAL
     Route: 048

REACTIONS (6)
  - Product quality issue [Unknown]
  - Intentional product misuse [Unknown]
  - Ocular discomfort [Unknown]
  - Off label use [Unknown]
  - Drug ineffective [Unknown]
  - Cough [Unknown]
